FAERS Safety Report 9772816 (Version 1)
Quarter: 2013Q4

REPORT INFORMATION
  Report Type: Spontaneous
  Country: AR (occurrence: None)
  Receive Date: 20131217
  Receipt Date: 20131217
  Transmission Date: 20140711
  Serious: Yes (Hospitalization)
  Sender: FDA-Public Use
  Company Number: VAL_02852_2013

PATIENT
  Sex: Female

DRUGS (1)
  1. METHYLERGOMETRINE MALEATE [Suspect]
     Indication: PRODUCT USED FOR UNKNOWN INDICATION

REACTIONS (2)
  - Caesarean section [None]
  - Maternal drugs affecting foetus [None]
